FAERS Safety Report 8529490-X (Version None)
Quarter: 2012Q3

REPORT INFORMATION
  Report Type: 
  Country: None (occurrence: None)
  Receive Date: 20120723
  Receipt Date: 20120715
  Transmission Date: 20120928
  Serious: Yes (Other)
  Sender: FDA-Public Use
  Company Number: US-US-EMD SERONO, INC.-7147840

PATIENT
  Sex: Male

DRUGS (2)
  1. REBIF [Suspect]
     Indication: MULTIPLE SCLEROSIS
     Route: 058
     Dates: start: 20120124
  2. ALEVE [Concomitant]
     Indication: PREMEDICATION

REACTIONS (6)
  - ASTHENIA [None]
  - SELF-INJURIOUS IDEATION [None]
  - DEPRESSION [None]
  - JC VIRUS TEST POSITIVE [None]
  - PROGRESSIVE MULTIPLE SCLEROSIS [None]
  - DYSARTHRIA [None]
